FAERS Safety Report 17699842 (Version 1)
Quarter: 2020Q2

REPORT INFORMATION
  Report Type: Spontaneous
  Country: US (occurrence: US)
  Receive Date: 20200423
  Receipt Date: 20200423
  Transmission Date: 20200714
  Serious: Yes (Hospitalization)
  Sender: FDA-Public Use
  Company Number: US-TEVA-2020-US-1224642

PATIENT
  Age: 38 Year
  Sex: Male

DRUGS (4)
  1. CLOZAPINE. [Suspect]
     Active Substance: CLOZAPINE
     Indication: SCHIZOAFFECTIVE DISORDER BIPOLAR TYPE
     Dosage: FIRST CLOZAPINE TRIAL; DOSE TITRATED TO 250MG OVER 3 WEEKS
     Route: 065
     Dates: start: 2006
  2. CLOZAPINE. [Suspect]
     Active Substance: CLOZAPINE
     Dosage: THIRD CLOZAPINE TRIAL; DOSE WAS TITRATED BY 12.5 MG/DAY
     Route: 065
     Dates: start: 201901
  3. CLOZAPINE. [Suspect]
     Active Substance: CLOZAPINE
     Dosage: SECOND CLOZAPINE TRIAL
     Route: 065
     Dates: start: 2013
  4. DIVALPROEX [Suspect]
     Active Substance: DIVALPROEX SODIUM
     Indication: SCHIZOAFFECTIVE DISORDER BIPOLAR TYPE
     Route: 065

REACTIONS (8)
  - Pyrexia [Recovered/Resolved]
  - Rash pruritic [Recovered/Resolved]
  - Eosinophilia [Recovered/Resolved]
  - Pleural effusion [Recovered/Resolved]
  - Leukocytosis [Recovered/Resolved]
  - Pancreatitis acute [Recovered/Resolved]
  - Drug hypersensitivity [Recovered/Resolved]
  - Influenza like illness [Recovered/Resolved]
